FAERS Safety Report 24793235 (Version 1)
Quarter: 2024Q4

REPORT INFORMATION
  Report Type: Spontaneous
  Country: US (occurrence: None)
  Receive Date: 20241231
  Receipt Date: 20241231
  Transmission Date: 20250115
  Serious: No
  Sender: Public
  Company Number: None

PATIENT
  Age: 86 Year
  Sex: Female
  Weight: 107.95 kg

DRUGS (1)
  1. FORTEO [Suspect]
     Active Substance: TERIPARATIDE
     Indication: Spinal compression fracture
     Dosage: FREQUENCY : DAILY;?
     Route: 058
     Dates: start: 202412

REACTIONS (2)
  - Gallbladder disorder [None]
  - Product use issue [None]
